FAERS Safety Report 5660668-9 (Version None)
Quarter: 2008Q1

REPORT INFORMATION
  Report Type: 
  Country: None (occurrence: None)
  Receive Date: 20080311
  Receipt Date: 20080305
  Transmission Date: 20080703
  Serious: Yes (Hospitalization)
  Sender: FDA-Public Use
  Company Number: IT-BAYER-200813952GPV

PATIENT
  Age: 71 Year
  Sex: Female

DRUGS (1)
  1. ASPIRIN [Suspect]
     Indication: NASOPHARYNGITIS
     Dosage: TOTAL DAILY DOSE: 400 MG  UNIT DOSE: 400 MG
     Route: 048
     Dates: start: 20080121, end: 20080124

REACTIONS (1)
  - CEREBRAL HAEMORRHAGE [None]
